FAERS Safety Report 25055017 (Version 3)
Quarter: 2025Q2

REPORT INFORMATION
  Report Type: Report from Study
  Country: US (occurrence: US)
  Receive Date: 20250308
  Receipt Date: 20250521
  Transmission Date: 20250716
  Serious: Yes (Other)
  Sender: ABBVIE
  Company Number: US-ABBVIE-6163533

PATIENT
  Age: 62 Year
  Sex: Male

DRUGS (4)
  1. SKYRIZI [Suspect]
     Active Substance: RISANKIZUMAB-RZAA
     Indication: Psoriasis
     Route: 058
     Dates: end: 202312
  2. SKYRIZI [Suspect]
     Active Substance: RISANKIZUMAB-RZAA
     Dosage: STRENGTH: 150MG/ML
     Route: 058
     Dates: start: 202501
  3. SKYRIZI [Suspect]
     Active Substance: RISANKIZUMAB-RZAA
     Route: 058
  4. SKYRIZI [Suspect]
     Active Substance: RISANKIZUMAB-RZAA
     Route: 058
     Dates: start: 20231001

REACTIONS (4)
  - Hernia [Recovered/Resolved]
  - Localised infection [Recovered/Resolved]
  - Psoriasis [Unknown]
  - Influenza [Recovered/Resolved]

NARRATIVE: CASE EVENT DATE: 20231201
